FAERS Safety Report 10092995 (Version 1)
Quarter: 2014Q2

REPORT INFORMATION
  Report Type: Spontaneous
  Country: US (occurrence: US)
  Receive Date: 20140421
  Receipt Date: 20140421
  Transmission Date: 20141212
  Serious: No
  Sender: FDA-Public Use
  Company Number: US-SA-2013SA115435

PATIENT
  Age: 69 Year
  Sex: Male

DRUGS (1)
  1. ALLEGRA [Suspect]
     Indication: SEASONAL ALLERGY
     Dosage: TAKEN FROM- 1.5 WEEKS AGO
     Route: 048

REACTIONS (3)
  - Blood glucose decreased [Unknown]
  - Wrong drug administered [Unknown]
  - Drug dose omission [Unknown]
